FAERS Safety Report 4552274-4 (Version None)
Quarter: 2005Q1

REPORT INFORMATION
  Report Type: 
  Country: None (occurrence: None)
  Receive Date: 20050112
  Receipt Date: 20050112
  Transmission Date: 20050727
  Serious: Yes (Hospitalization)
  Sender: FDA-Public Use
  Company Number: None

PATIENT
  Sex: Female
  Weight: 83.5 kg

DRUGS (8)
  1. MOXIFLOXACIN  ?  BAYER [Suspect]
     Indication: SINUSITIS
     Dosage: ORAL
     Route: 048
     Dates: start: 20041221, end: 20041223
  2. MOXIFLOXACIN [Suspect]
     Indication: SINUSITIS
     Dosage: ORAL
     Route: 048
     Dates: start: 20041228, end: 20050108
  3. PERCOCET [Concomitant]
  4. ACYCLOVIR [Concomitant]
  5. AMANTADINE [Concomitant]
  6. COLACE [Concomitant]
  7. REGLAN [Concomitant]
  8. DULCOLAX [Concomitant]

REACTIONS (9)
  - ANXIETY [None]
  - ENCEPHALITIS [None]
  - HEADACHE [None]
  - HYPOTENSION [None]
  - MENINGITIS ASEPTIC [None]
  - NUCHAL RIGIDITY [None]
  - PHOTOPHOBIA [None]
  - PYREXIA [None]
  - SERUM SICKNESS [None]
